FAERS Safety Report 11253539 (Version 2)
Quarter: 2015Q3

REPORT INFORMATION
  Report Type: Spontaneous
  Country: RO (occurrence: None)
  Receive Date: 20150707
  Receipt Date: 20150714
  Transmission Date: 20151125
  Serious: Yes (Hospitalization, Other)
  Sender: FDA-Public Use
  Company Number: 2015-11671

PATIENT
  Age: 64 Year
  Sex: Female

DRUGS (4)
  1. SERMION (NICERGOLINE) [Concomitant]
  2. EYLEA [Suspect]
     Active Substance: AFLIBERCEPT
     Indication: MACULAR OEDEMA
     Route: 031
     Dates: start: 201411, end: 201411
  3. TANAKAN (GINKGO BILOBA EXTRACT) [Concomitant]
  4. EUTIROX (LEVOTHYROXINE SODIUM) [Concomitant]
     Active Substance: LEVOTHYROXINE SODIUM

REACTIONS (4)
  - Tinnitus [None]
  - Off label use [None]
  - Deafness neurosensory [None]
  - Ear discomfort [None]

NARRATIVE: CASE EVENT DATE: 20150513
